FAERS Safety Report 7291680-4 (Version None)
Quarter: 2011Q1

REPORT INFORMATION
  Report Type: 
  Country: None (occurrence: None)
  Receive Date: 20110214
  Receipt Date: 20110201
  Transmission Date: 20110831
  Serious: Yes (Hospitalization)
  Sender: FDA-Public Use
  Company Number: JP-ELI_LILLY_AND_COMPANY-JP201011006987

PATIENT
  Sex: Female
  Weight: 50 kg

DRUGS (6)
  1. DECADRON /00016002/ [Concomitant]
     Dosage: 8.25 MG, UNK
     Route: 042
     Dates: start: 20101101, end: 20101101
  2. ZANTAC [Concomitant]
     Dosage: 50 MG, DAILY (1/D)
     Route: 042
     Dates: start: 20101101, end: 20101101
  3. GEMZAR [Suspect]
     Indication: BREAST CANCER STAGE III
     Dosage: 1250 MG/M2, UNK
     Route: 042
     Dates: start: 20101101, end: 20101101
  4. PACLITAXEL [Concomitant]
     Indication: BREAST CANCER STAGE III
     Dosage: 175 MG/M2, UNK
     Route: 042
     Dates: start: 20101101, end: 20101101
  5. HERCEPTIN [Concomitant]
     Indication: BREAST CANCER STAGE III
     Dosage: 2 MG/KG, UNK
     Route: 042
     Dates: start: 20101101, end: 20101101
  6. GRANISETRON HCL [Concomitant]
     Dosage: 3 MG, DAILY (1/D)
     Route: 042
     Dates: start: 20101101, end: 20101101

REACTIONS (4)
  - CYSTITIS HAEMORRHAGIC [None]
  - ANAEMIA [None]
  - PLATELET COUNT DECREASED [None]
  - BLADDER TAMPONADE [None]
